FAERS Safety Report 18768516 (Version 1)
Quarter: 2021Q1

REPORT INFORMATION
  Report Type: Spontaneous
  Country: US (occurrence: US)
  Receive Date: 20210121
  Receipt Date: 20210121
  Transmission Date: 20210419
  Serious: Yes (Hospitalization)
  Sender: FDA-Public Use
  Company Number: None

PATIENT
  Sex: Female

DRUGS (4)
  1. DETROL LA [Concomitant]
     Active Substance: TOLTERODINE TARTRATE
  2. GLATIRAMER [Suspect]
     Active Substance: GLATIRAMER
     Indication: MULTIPLE SCLEROSIS
     Dosage: ?          OTHER FREQUENCY:THREE TIMES A WEEK;?
     Route: 058
     Dates: start: 20190125
  3. LYRICA [Concomitant]
     Active Substance: PREGABALIN
  4. GABAPENTIN. [Concomitant]
     Active Substance: GABAPENTIN

REACTIONS (4)
  - Flushing [None]
  - Pyrexia [None]
  - Spinal operation [None]
  - Chills [None]
